FAERS Safety Report 6999322-X (Version None)
Quarter: 2010Q3

REPORT INFORMATION
  Report Type: 
  Country: None (occurrence: None)
  Receive Date: 20100920
  Receipt Date: 20091105
  Transmission Date: 20110219
  Serious: Yes (Other)
  Sender: FDA-Public Use
  Company Number: US-ASTRAZENECA-2008UW27553

PATIENT
  Age: 16194 Day
  Sex: Female
  Weight: 95.3 kg

DRUGS (6)
  1. SEROQUEL [Suspect]
     Indication: BIPOLAR DISORDER
     Route: 048
     Dates: start: 20040101, end: 20061101
  2. SEROQUEL [Suspect]
     Indication: DEPRESSION
     Route: 048
     Dates: start: 20040101, end: 20061101
  3. SEROQUEL [Suspect]
     Route: 048
     Dates: start: 20061104
  4. SEROQUEL [Suspect]
     Route: 048
     Dates: start: 20061104
  5. ABILIFY [Concomitant]
     Dates: start: 20080104, end: 20080206
  6. INVEGA [Concomitant]
     Dates: start: 20081201

REACTIONS (2)
  - PANCREATITIS [None]
  - TYPE 2 DIABETES MELLITUS [None]
